FAERS Safety Report 9871222 (Version 1)
Quarter: 2014Q1

REPORT INFORMATION
  Report Type: Spontaneous
  Country: US (occurrence: US)
  Receive Date: 20140205
  Receipt Date: 20140205
  Transmission Date: 20141002
  Serious: Yes (Other)
  Sender: FDA-Public Use
  Company Number: US-GLAXOSMITHKLINE-A1049102A

PATIENT
  Age: 58 Year
  Sex: Female

DRUGS (1)
  1. TYKERB [Suspect]
     Indication: BREAST CANCER
     Dosage: 1250MG CYCLIC
     Route: 048

REACTIONS (9)
  - Device related infection [Unknown]
  - Dysphonia [Unknown]
  - Diarrhoea [Unknown]
  - Epistaxis [Unknown]
  - Breast prosthesis user [Unknown]
  - Rhinorrhoea [Unknown]
  - Dehydration [Unknown]
  - Nasal congestion [Unknown]
  - Frequent bowel movements [Unknown]
